FAERS Safety Report 18937771 (Version 1)
Quarter: 2021Q1

REPORT INFORMATION
  Report Type: Other
  Country: CA (occurrence: CA)
  Receive Date: 20210225
  Receipt Date: 20210225
  Transmission Date: 20210420
  Serious: Yes (Life-Threatening, Hospitalization, Other)
  Sender: FDA-Public Use
  Company Number: CA-DEXPHARM-20210205

PATIENT
  Age: 18 Year
  Sex: Female

DRUGS (3)
  1. VENLAFAXINE XR 150 MG [Suspect]
     Active Substance: VENLAFAXINE HYDROCHLORIDE
     Dosage: VENLAFAXINE XR 150 MG +#215; 120 TABLETS (18 000 MG)
  2. DIAZEPAM. [Suspect]
     Active Substance: DIAZEPAM
     Dosage: 5 MG X 10 TABLETS (50 MG)
  3. FLUOXETINE [Suspect]
     Active Substance: FLUOXETINE HYDROCHLORIDE
     Dosage: 10 MG +#215; 30 TABLETS (300 MG)

REACTIONS (8)
  - Cardiac dysfunction [Recovered/Resolved]
  - Acute kidney injury [Recovered/Resolved]
  - Drug interaction [Recovered/Resolved]
  - Hypoglycaemia [Recovered/Resolved]
  - Intentional overdose [Recovered/Resolved]
  - Seizure [Recovered/Resolved]
  - Hypotension [Recovered/Resolved]
  - Liver injury [Recovered/Resolved]
